FAERS Safety Report 9663160 (Version 2)
Quarter: 2013Q4

REPORT INFORMATION
  Report Type: Report from Study
  Country: JP (occurrence: JP)
  Receive Date: 20131101
  Receipt Date: 20131231
  Transmission Date: 20140711
  Serious: Yes (Death, Life-Threatening, Other)
  Sender: FDA-Public Use
  Company Number: JP-AMGEN-JPNCT2013076777

PATIENT
  Age: 1 Year
  Sex: Female
  Weight: 8.2 kg

DRUGS (22)
  1. ROMIPLOSTIM - KHK [Suspect]
     Indication: IMMUNE THROMBOCYTOPENIC PURPURA
     Dosage: 5 MUG/KG, QD
     Route: 058
     Dates: start: 20130404
  2. PREDONINE [Concomitant]
     Indication: IMMUNE THROMBOCYTOPENIC PURPURA
     Dosage: 1 MG/KG, UNK
     Route: 048
     Dates: start: 20130402, end: 20130407
  3. PREDONINE [Concomitant]
     Dosage: 0.5 MG/KG, UNK
     Route: 048
     Dates: start: 20130408, end: 20130410
  4. PREDONINE [Concomitant]
     Dosage: 0.25 MG/KG, UNK
     Route: 048
     Dates: start: 20130411, end: 20130414
  5. VENILON [Concomitant]
     Indication: IMMUNE THROMBOCYTOPENIC PURPURA
     Dosage: 1000 MG/KG, UNK
     Route: 042
     Dates: start: 20130321, end: 20130322
  6. VENILON [Concomitant]
     Dosage: 1000 MG/KG, UNK
     Route: 042
     Dates: start: 20130402, end: 20130403
  7. VENILON [Concomitant]
     Dosage: 1000 MG/KG, UNK
     Route: 042
     Dates: start: 20130424, end: 20130425
  8. VENILON [Concomitant]
     Dosage: 1000 MG/KG, UNK
     Route: 042
     Dates: start: 20130513, end: 20130514
  9. VENILON [Concomitant]
     Dosage: 1000 MG/KG, UNK
     Route: 042
     Dates: start: 20130520, end: 20130521
  10. LASIX                              /00032601/ [Concomitant]
     Indication: CARDIAC FAILURE
     Dosage: UNK
     Route: 048
  11. LASIX                              /00032601/ [Concomitant]
     Indication: FALLOT^S TETRALOGY
  12. TRICLORYL [Concomitant]
     Indication: SEDATION
     Dosage: UNK
     Route: 048
  13. BIOTIN [Concomitant]
     Indication: MALNUTRITION
     Dosage: UNK
     Route: 065
  14. ONEALFA [Concomitant]
     Indication: HYPOPARATHYROIDISM
     Dosage: UNK
     Route: 048
  15. INCREMIN                           /00023544/ [Concomitant]
     Indication: IRON DEFICIENCY ANAEMIA
     Dosage: UNK
     Route: 048
  16. ALDACTONE A [Concomitant]
     Indication: CARDIAC FAILURE
     Dosage: UNK
     Route: 048
  17. ALDACTONE A [Concomitant]
     Indication: FALLOT^S TETRALOGY
  18. BENAMBAX [Concomitant]
     Indication: PROPHYLAXIS
     Dosage: UNK
     Route: 065
  19. OMEPRAL [Concomitant]
     Indication: UPPER GASTROINTESTINAL HAEMORRHAGE
     Dosage: UNK
     Route: 065
  20. SELBEX [Concomitant]
     Indication: UPPER GASTROINTESTINAL HAEMORRHAGE
     Dosage: UNK
     Route: 048
  21. ALLOID G [Concomitant]
     Indication: UPPER GASTROINTESTINAL HAEMORRHAGE
     Dosage: UNK
     Route: 048
  22. TAKEPRON [Concomitant]
     Indication: UPPER GASTROINTESTINAL HAEMORRHAGE
     Dosage: UNK
     Route: 048

REACTIONS (9)
  - Cerebral haemorrhage [Fatal]
  - Lower gastrointestinal haemorrhage [Not Recovered/Not Resolved]
  - Neutrophil count decreased [Recovering/Resolving]
  - Upper gastrointestinal haemorrhage [Not Recovered/Not Resolved]
  - Pneumonia [Recovered/Resolved]
  - Refractoriness to platelet transfusion [Not Recovered/Not Resolved]
  - Hepatic function abnormal [Recovering/Resolving]
  - Epistaxis [Recovering/Resolving]
  - Enteritis infectious [Recovered/Resolved]
